FAERS Safety Report 16286851 (Version 4)
Quarter: 2019Q2

REPORT INFORMATION
  Report Type: Spontaneous
  Country: ES (occurrence: ES)
  Receive Date: 20190508
  Receipt Date: 20190516
  Transmission Date: 20190711
  Serious: Yes (Life-Threatening, Hospitalization, Congenital Anomaly, Other)
  Sender: FDA-Public Use
  Company Number: ES-PFIZER INC-2019190805

PATIENT
  Age: 52 Year
  Sex: Male
  Weight: 82 kg

DRUGS (4)
  1. COLESTIPOL [Concomitant]
     Active Substance: COLESTIPOL
     Indication: DYSLIPIDAEMIA
     Dosage: 5 G, DAILY (FOR THE LAST 4 YEARS)
  2. ATORVASTATIN CALCIUM. [Suspect]
     Active Substance: ATORVASTATIN CALCIUM
     Indication: MYOCARDIAL INFARCTION
  3. COLESTIPOL [Concomitant]
     Active Substance: COLESTIPOL
     Dosage: 10 G, DAILY (DOUBLED)
     Route: 065
  4. ATORVASTATIN CALCIUM. [Suspect]
     Active Substance: ATORVASTATIN CALCIUM
     Indication: DYSLIPIDAEMIA
     Dosage: 20 MG, 1X/DAY

REACTIONS (3)
  - Haematuria [Unknown]
  - Glycogen storage disease type V [Recovered/Resolved]
  - Rhabdomyolysis [Recovered/Resolved]
